FAERS Safety Report 24560859 (Version 2)
Quarter: 2024Q4

REPORT INFORMATION
  Report Type: Spontaneous
  Country: CA (occurrence: CA)
  Receive Date: 20241029
  Receipt Date: 20241113
  Transmission Date: 20250115
  Serious: Yes (Other)
  Sender: PFIZER
  Company Number: CA-PFIZER INC-202400005517

PATIENT
  Age: 77 Year
  Sex: Female

DRUGS (7)
  1. RUXIENCE [Suspect]
     Active Substance: RITUXIMAB-PVVR
     Indication: Antisynthetase syndrome
     Dosage: 1000 MG, 1 G, EVERY 6 MONTHS (DAY 1 AND 15 Q 6 MONTHS)
     Route: 042
     Dates: start: 20240425
  2. RUXIENCE [Suspect]
     Active Substance: RITUXIMAB-PVVR
     Dosage: 1 G, EVERY 6 MONTHS (DAY 1 AND 15 Q 6 MONTHS), (DOSAGE ADMINISTERED: 1000 MG, DAY 15)
     Route: 042
     Dates: start: 20240509
  3. RUXIENCE [Suspect]
     Active Substance: RITUXIMAB-PVVR
     Dosage: 1000 MG, SUBSEQUENT DAY 1, (1G, EVERY 6 MONTH, DAY 1 AND 15 Q 6 MONTHS)
     Route: 042
     Dates: start: 20241024
  4. RUXIENCE [Suspect]
     Active Substance: RITUXIMAB-PVVR
     Dosage: 1000 MG, DAY 15 (EVERY 6 MONTH, DAY 1 AND 15 Q 6 MONTHS)
     Route: 042
     Dates: start: 20241107
  5. ACETAMINOPHEN [Concomitant]
     Active Substance: ACETAMINOPHEN
     Indication: Premedication
     Dosage: UNK
     Dates: start: 20241024, end: 20241024
  6. DIPHENHYDRAMINE [Concomitant]
     Active Substance: DIPHENHYDRAMINE
     Indication: Premedication
     Dosage: UNK
     Dates: start: 20241024, end: 20241024
  7. METHYLPREDNISOLONE [Concomitant]
     Active Substance: METHYLPREDNISOLONE
     Indication: Premedication
     Dosage: UNK
     Dates: start: 20241024, end: 20241024

REACTIONS (8)
  - Blood pressure increased [Not Recovered/Not Resolved]
  - Fall [Recovering/Resolving]
  - Shoulder fracture [Recovering/Resolving]
  - Infusion site extravasation [Recovered/Resolved]
  - Cellulitis [Recovered/Resolved]
  - COVID-19 [Recovered/Resolved]
  - Condition aggravated [Not Recovered/Not Resolved]
  - Off label use [Unknown]

NARRATIVE: CASE EVENT DATE: 20240425
